FAERS Safety Report 10422508 (Version 2)
Quarter: 2014Q3

REPORT INFORMATION
  Report Type: Report from Study
  Country: AU (occurrence: AU)
  Receive Date: 20140901
  Receipt Date: 20140918
  Transmission Date: 20150326
  Serious: Yes (Other)
  Sender: FDA-Public Use
  Company Number: PHHY2014AU103854

PATIENT
  Age: 36 Year
  Sex: Male

DRUGS (5)
  1. CLOZARIL [Suspect]
     Active Substance: CLOZAPINE
     Indication: SCHIZOPHRENIA, RESIDUAL TYPE
     Dosage: 400 MG
     Route: 048
     Dates: start: 20060528
  2. CLOZARIL [Suspect]
     Active Substance: CLOZAPINE
     Indication: AFFECTIVE DISORDER
     Dosage: 400 MG (100 MG MANE AND 300 MG NOCTE)
     Route: 048
     Dates: start: 20140520
  3. VALPROATE [Concomitant]
     Active Substance: VALPROATE SODIUM
     Dosage: 200 MG MANE
  4. ARIPIPRAZOLE [Concomitant]
     Active Substance: ARIPIPRAZOLE
     Dosage: 20 MG MANE
     Dates: start: 20140520
  5. FLUOXETINE [Concomitant]
     Active Substance: FLUOXETINE\FLUOXETINE HYDROCHLORIDE
     Dosage: 40 MG,DAILY

REACTIONS (7)
  - Abnormal behaviour [Unknown]
  - Schizophrenia [Unknown]
  - Delusion [Unknown]
  - Emotional distress [Unknown]
  - White blood cell count increased [Recovered/Resolved]
  - Multiple sclerosis [Unknown]
  - Neutrophil count increased [Recovered/Resolved]

NARRATIVE: CASE EVENT DATE: 20060710
